FAERS Safety Report 7688286-1 (Version None)
Quarter: 2011Q3

REPORT INFORMATION
  Report Type: 
  Country: None (occurrence: None)
  Receive Date: 20110817
  Receipt Date: 20110107
  Transmission Date: 20111222
  Serious: No
  Sender: FDA-Public Use
  Company Number: US-KINGPHARMUSA00001-K201100029

PATIENT
  Sex: Male

DRUGS (3)
  1. SYNTHROID [Suspect]
     Dosage: 100 MCG, UNK
     Route: 048
  2. CYTOMEL [Suspect]
     Dosage: 25 MCG, UNK
     Route: 048
  3. CYTOMEL [Suspect]
     Dosage: 22 MCG, UNK
     Route: 048

REACTIONS (3)
  - HYPOAESTHESIA [None]
  - HEADACHE [None]
  - ABDOMINAL DISCOMFORT [None]
